FAERS Safety Report 9728868 (Version 1)
Quarter: 2013Q4

REPORT INFORMATION
  Report Type: Spontaneous
  Country: US (occurrence: US)
  Receive Date: 20131204
  Receipt Date: 20131204
  Transmission Date: 20140711
  Serious: No
  Sender: FDA-Public Use
  Company Number: US-BIOGENIDEC-2013BI098381

PATIENT
  Age: 69 Year
  Sex: Male

DRUGS (9)
  1. TECFIDERA [Suspect]
     Indication: MULTIPLE SCLEROSIS
     Route: 048
     Dates: start: 20130930
  2. NASONEX [Concomitant]
  3. BACLOFEN [Concomitant]
  4. GABAPENTIN [Concomitant]
  5. CARBAMAZEPINE [Concomitant]
  6. SORBITOL [Concomitant]
  7. CYCLOBENZAPRINE [Concomitant]
  8. DIAZEPAM [Concomitant]
  9. CLONAZEPAM [Concomitant]

REACTIONS (1)
  - Pain in extremity [Unknown]
